FAERS Safety Report 18379965 (Version 7)
Quarter: 2023Q2

REPORT INFORMATION
  Report Type: Report from Study
  Country: IL (occurrence: IL)
  Receive Date: 20201014
  Receipt Date: 20230503
  Transmission Date: 20230721
  Serious: Yes (Death, Hospitalization, Other)
  Sender: FDA-Public Use
  Company Number: IL-ABBVIE-20K-082-3516122-00

PATIENT
  Age: 71 Year
  Sex: Male
  Weight: 86 kg

DRUGS (14)
  1. VENETOCLAX [Suspect]
     Active Substance: VENETOCLAX
     Indication: Chronic lymphocytic leukaemia
     Dosage: 20 MG, DOSE INCREASE ACCORDING TO VENETOCLAX DOSE TITRATION SCHEME
     Route: 048
     Dates: start: 20200331, end: 20200406
  2. VENETOCLAX [Suspect]
     Active Substance: VENETOCLAX
     Indication: Chronic lymphocytic leukaemia
     Dosage: 50 MG, DOSE INCREASE ACCORDING TO VENETOCLAX DOSE TITRATION?SCHEME
     Route: 048
     Dates: start: 20200407, end: 20200413
  3. VENETOCLAX [Suspect]
     Active Substance: VENETOCLAX
     Indication: Chronic lymphocytic leukaemia
     Dosage: 100 MILLIGRAM
     Route: 048
     Dates: start: 20200414, end: 20200414
  4. VENETOCLAX [Suspect]
     Active Substance: VENETOCLAX
     Indication: Chronic lymphocytic leukaemia
     Dosage: 0 MILLIGRAM
     Route: 048
     Dates: start: 20200415, end: 20200505
  5. VENETOCLAX [Suspect]
     Active Substance: VENETOCLAX
     Indication: Chronic lymphocytic leukaemia
     Dosage: 50 MG, DOSE INCREASE ACCORDING TO VENETOCLAX DOSE TITRATION?SCHEME
     Route: 048
     Dates: start: 20200506, end: 20200507
  6. VENETOCLAX [Suspect]
     Active Substance: VENETOCLAX
     Indication: Chronic lymphocytic leukaemia
     Dosage: 100 MG, DOSE INCREASE ACCORDING TO VENETOCLAX DOSE TITRATION?SCHEME
     Route: 048
     Dates: start: 20200508, end: 20200512
  7. VENETOCLAX [Suspect]
     Active Substance: VENETOCLAX
     Indication: Chronic lymphocytic leukaemia
     Dosage: 200 MG, DOSE INCREASE ACCORDING TO VENETOCLAX DOSE TITRATION?SCHEME
     Route: 048
     Dates: start: 20200513, end: 20200519
  8. VENETOCLAX [Suspect]
     Active Substance: VENETOCLAX
     Indication: Chronic lymphocytic leukaemia
     Dosage: 400 MILLIGRAM
     Route: 048
     Dates: start: 20200520, end: 202201
  9. OMEPRAZOLE [Concomitant]
     Active Substance: OMEPRAZOLE
     Indication: Gastrointestinal disorder prophylaxis
     Dates: start: 20091208
  10. AMLODIPINE [Concomitant]
     Active Substance: AMLODIPINE BESYLATE
     Indication: Hypertension
     Dates: start: 20200306
  11. SIMVAXON [Concomitant]
     Indication: Hypercholesterolaemia
     Dates: start: 20080915
  12. ALLOPURINOL [Concomitant]
     Active Substance: ALLOPURINOL
     Indication: Prophylaxis
     Dates: start: 20200331, end: 202006
  13. PFIZER-BIONTECH COVID-19 VACCINE [Concomitant]
     Active Substance: TOZINAMERAN
     Indication: COVID-19 immunisation
     Dosage: PFIZER?ONE IN ONCE
     Route: 030
     Dates: start: 20201228, end: 20201228
  14. PFIZER-BIONTECH COVID-19 VACCINE [Concomitant]
     Active Substance: TOZINAMERAN
     Indication: COVID-19 immunisation
     Dosage: PFIZER?ONE IN ONCE
     Route: 030
     Dates: start: 20210118, end: 20210118

REACTIONS (5)
  - COVID-19 [Fatal]
  - Disease progression [Unknown]
  - Pyrexia [Recovered/Resolved]
  - Infection [Recovered/Resolved]
  - Neutropenia [Not Recovered/Not Resolved]

NARRATIVE: CASE EVENT DATE: 20200408
